FAERS Safety Report 26074320 (Version 1)
Quarter: 2025Q4

REPORT INFORMATION
  Report Type: Spontaneous
  Country: JP (occurrence: JP)
  Receive Date: 20251121
  Receipt Date: 20251121
  Transmission Date: 20260118
  Serious: Yes (Death)
  Sender: ALEXION PHARMACEUTICALS
  Company Number: JP-ASTRAZENECA-202511JPN013287JP

PATIENT
  Age: 56 Year

DRUGS (1)
  1. TRUQAP [Suspect]
     Active Substance: CAPIVASERTIB
     Indication: Breast cancer recurrent
     Dosage: UNK
     Route: 065

REACTIONS (4)
  - Death [Fatal]
  - Diarrhoea [Unknown]
  - Stomatitis [Unknown]
  - Rash [Unknown]
